FAERS Safety Report 5129714-5 (Version None)
Quarter: 2006Q4

REPORT INFORMATION
  Report Type: 
  Country: None (occurrence: None)
  Receive Date: 20061018
  Receipt Date: 20061009
  Transmission Date: 20070319
  Serious: Yes (Other)
  Sender: FDA-Public Use
  Company Number: US-ROCHE-466777

PATIENT
  Age: 89 Year
  Sex: Female
  Weight: 59 kg

DRUGS (3)
  1. BONIVA [Suspect]
     Indication: OSTEOPOROSIS
     Route: 048
     Dates: start: 20060720
  2. ATENOLOL [Concomitant]
     Indication: HYPERTENSION
     Route: 048
  3. METHYLDOPA [Concomitant]
     Indication: HYPERTENSION
     Route: 048

REACTIONS (1)
  - EPISTAXIS [None]
